FAERS Safety Report 5386698-2 (Version None)
Quarter: 2007Q3

REPORT INFORMATION
  Report Type: 
  Country: None (occurrence: None)
  Receive Date: 20070713
  Receipt Date: 20070703
  Transmission Date: 20080115
  Serious: Yes (Other)
  Sender: FDA-Public Use
  Company Number: JP-ROCHE-495184

PATIENT
  Age: 11 Year
  Sex: Male
  Weight: 37 kg

DRUGS (5)
  1. TAMIFLU [Suspect]
     Route: 048
     Dates: start: 20070224
  2. FLOMOX [Concomitant]
     Dosage: GENERIC REPORTED AS CEFACAPENE PIVOXIL HYDROCHLORIDE.
     Route: 048
     Dates: start: 20070224, end: 20070226
  3. LEFTOSE [Concomitant]
     Dosage: GENERIC REPORTED AS LYSOZYME HYDROCHLORIDE.
     Route: 048
  4. COCARL [Concomitant]
     Dosage: GENERIC REPORTED AS ACETAMINOPHEN.
     Route: 048
     Dates: start: 20070224, end: 20070226
  5. ASTOMIN [Concomitant]
     Dosage: GENERIC REPORTED AS DIMETOMORFAN PHOSPHATE.
     Route: 048
     Dates: start: 20070224, end: 20070226

REACTIONS (2)
  - ABNORMAL BEHAVIOUR [None]
  - HALLUCINATION [None]
